FAERS Safety Report 9323978 (Version 3)
Quarter: 2013Q4

REPORT INFORMATION
  Report Type: Report from Study
  Country: NL (occurrence: NL)
  Receive Date: 20130603
  Receipt Date: 20131112
  Transmission Date: 20140711
  Serious: Yes (Hospitalization)
  Sender: FDA-Public Use
  Company Number: NL-ROCHE-1216870

PATIENT
  Age: 68 Year
  Sex: Male
  Weight: 48.1 kg

DRUGS (17)
  1. VEMURAFENIB [Suspect]
     Indication: METASTATIC MALIGNANT MELANOMA
     Dosage: LAST DOSE PRIOR TO SAE: 14/APR/2013
     Route: 048
     Dates: start: 20120727, end: 20130414
  2. VEMURAFENIB [Suspect]
     Route: 065
     Dates: start: 20130822
  3. OXYBUTYNIN [Concomitant]
  4. OXYCONTIN [Concomitant]
  5. PANTOPRAZOL [Concomitant]
  6. SALMETEROL XINAFOATE/FLUTICASONE PROPIONATE [Concomitant]
  7. SIMVASTATINE [Concomitant]
  8. CARBASALATE CALCIUM [Concomitant]
     Route: 065
     Dates: start: 2013
  9. ALENDRONIC ACID [Concomitant]
  10. AMLODIPINE [Concomitant]
  11. UREA CREAM [Concomitant]
     Route: 065
     Dates: start: 20120727
  12. LISINOPRIL [Concomitant]
  13. PREDNISONE [Concomitant]
  14. OXYNORM [Concomitant]
     Route: 065
  15. PARACETAMOL [Concomitant]
     Route: 065
  16. MOVICOLON [Concomitant]
     Dosage: 1 SACHET
     Route: 065
  17. CARBASALATE CALCIUM [Concomitant]
     Route: 065

REACTIONS (2)
  - Clostridium colitis [Not Recovered/Not Resolved]
  - Diarrhoea [Recovered/Resolved]
